FAERS Safety Report 20694803 (Version 1)
Quarter: 2022Q2

REPORT INFORMATION
  Report Type: Spontaneous
  Country: US (occurrence: None)
  Receive Date: 20220411
  Receipt Date: 20220411
  Transmission Date: 20220721
  Serious: No
  Sender: FDA-Public Use
  Company Number: 2022A114053

PATIENT
  Age: 25601 Day
  Sex: Female
  Weight: 68.9 kg

DRUGS (1)
  1. TAGRISSO [Suspect]
     Active Substance: OSIMERTINIB
     Indication: Non-small cell lung cancer
     Route: 048
     Dates: start: 20220313

REACTIONS (4)
  - Headache [Unknown]
  - Influenza like illness [Unknown]
  - Restlessness [Unknown]
  - Malaise [Unknown]

NARRATIVE: CASE EVENT DATE: 20220313
